FAERS Safety Report 24323641 (Version 3)
Quarter: 2024Q4

REPORT INFORMATION
  Report Type: Spontaneous
  Country: CN (occurrence: CN)
  Receive Date: 20240916
  Receipt Date: 20241106
  Transmission Date: 20250114
  Serious: No
  Sender: PFIZER
  Company Number: CN-PFIZER INC-PV202400115627

PATIENT
  Age: 10 Year
  Sex: Male

DRUGS (1)
  1. BENEFIX [Suspect]
     Active Substance: COAGULATION FACTOR IX RECOMBINANT HUMAN\ISOPROPYL ALCOHOL
     Dosage: UNK

REACTIONS (2)
  - Device connection issue [Unknown]
  - Device leakage [Unknown]
